FAERS Safety Report 23558128 (Version 3)
Quarter: 2024Q3

REPORT INFORMATION
  Report Type: Report from Study
  Country: JP (occurrence: JP)
  Receive Date: 20240223
  Receipt Date: 20240710
  Transmission Date: 20241017
  Serious: Yes (Other)
  Sender: ROCHE
  Company Number: JP-ROCHE-3514822

PATIENT
  Age: 63 Year
  Sex: Male

DRUGS (1)
  1. BEVACIZUMAB [Suspect]
     Active Substance: BEVACIZUMAB
     Indication: Colorectal cancer
     Dosage: 70 CYCLES
     Route: 065

REACTIONS (3)
  - Proteinuria [Unknown]
  - Nephrotic syndrome [Unknown]
  - Renal failure [Unknown]
